FAERS Safety Report 5726433-9 (Version None)
Quarter: 2008Q2

REPORT INFORMATION
  Report Type: 
  Country: None (occurrence: None)
  Receive Date: 20080502
  Receipt Date: 20080422
  Transmission Date: 20081010
  Serious: Yes (Other)
  Sender: FDA-Public Use
  Company Number: B0431787A

PATIENT
  Age: 35 Year
  Sex: Female

DRUGS (13)
  1. PAROXETINE HCL [Suspect]
     Indication: DEPRESSION
     Route: 065
     Dates: start: 19980824
  2. PAROXETINE HCL [Suspect]
     Route: 048
  3. ST JOHNS WORT [Concomitant]
     Route: 065
  4. HOMEOPATHIC MEDICATION [Concomitant]
     Route: 065
  5. EFFEXOR [Concomitant]
     Dates: start: 19970415
  6. CITALOPRAM HYDROBROMIDE [Concomitant]
     Dates: start: 20020510
  7. DIAZEPAM [Concomitant]
     Dates: start: 19990216
  8. BETABLOCKER [Concomitant]
  9. FERROUS SULFATE TAB [Concomitant]
  10. SERTRALINE [Concomitant]
  11. VENLAFAXINE HCL [Concomitant]
  12. FLUOXETINE [Concomitant]
  13. CITALOPRAM HYDROBROMIDE [Concomitant]

REACTIONS (24)
  - ANGER [None]
  - ANXIETY [None]
  - CONDITION AGGRAVATED [None]
  - CONFUSIONAL STATE [None]
  - CRYING [None]
  - DECREASED APPETITE [None]
  - DEPRESSION [None]
  - DISTURBANCE IN ATTENTION [None]
  - DIZZINESS [None]
  - EMOTIONAL DISTRESS [None]
  - FATIGUE [None]
  - HYPERHIDROSIS [None]
  - INSOMNIA [None]
  - IRRITABILITY [None]
  - LETHARGY [None]
  - MEMORY IMPAIRMENT [None]
  - MOOD SWINGS [None]
  - NIGHTMARE [None]
  - PARANOIA [None]
  - SENSORY DISTURBANCE [None]
  - SOMNOLENCE [None]
  - SUICIDAL IDEATION [None]
  - VISION BLURRED [None]
  - WITHDRAWAL SYNDROME [None]
